FAERS Safety Report 5084853-2 (Version None)
Quarter: 2006Q3

REPORT INFORMATION
  Report Type: 
  Country: None (occurrence: None)
  Receive Date: 20060815
  Receipt Date: 20060802
  Transmission Date: 20061208
  Serious: Yes (Hospitalization)
  Sender: FDA-Public Use
  Company Number: 2006-04303

PATIENT
  Age: 10 Year
  Sex: Male

DRUGS (3)
  1. ETOPOSIDE [Suspect]
     Indication: PRIMITIVE NEUROECTODERMAL TUMOUR
     Dosage: 250 MG/M2, DAILY X 4 DAYS, INTRAVENOUS
     Route: 042
  2. CARBOPLATIN [Suspect]
     Indication: PRIMITIVE NEUROECTODERMAL TUMOUR
     Dosage: 500 MG/M2, DAILY X 4 DAYS, INTRAVENOUS
     Route: 042
  3. THIOTEPA [Suspect]
     Indication: PRIMITIVE NEUROECTODERMAL TUMOUR
     Dosage: 150 MG/M2, DAILY X 4 DAYS, INTRAVENOUS
     Route: 042

REACTIONS (2)
  - ASPERGILLOSIS [None]
  - GASTROINTESTINAL FUNGAL INFECTION [None]
